FAERS Safety Report 8773368 (Version 4)
Quarter: 2013Q1

REPORT INFORMATION
  Report Type: Report from Study
  Country: US (occurrence: US)
  Receive Date: 20120907
  Receipt Date: 20130206
  Transmission Date: 20140127
  Serious: Yes (Other)
  Sender: FDA-Public Use
  Company Number: US-ROCHE-1028262

PATIENT
  Sex: Female

DRUGS (6)
  1. PEG-INTERFERON ALFA 2A [Suspect]
     Indication: CHRONIC HEPATITIS C
     Route: 065
     Dates: start: 20111208, end: 20121108
  2. RIBAVIRIN [Suspect]
     Indication: CHRONIC HEPATITIS C
     Route: 065
     Dates: start: 20111208, end: 201204
  3. RIBAVIRIN [Suspect]
     Route: 065
     Dates: start: 201204
  4. NEURONTIN [Concomitant]
     Indication: FIBROMYALGIA
  5. PROCRIT [Concomitant]
     Route: 065
     Dates: start: 20120911
  6. MULTIVITAMINS [Concomitant]

REACTIONS (23)
  - Emphysema [Unknown]
  - Diarrhoea [Unknown]
  - Rectal haemorrhage [Unknown]
  - Dizziness [Unknown]
  - Dizziness [Unknown]
  - Injection site haemorrhage [Unknown]
  - Insomnia [Unknown]
  - Weight decreased [Unknown]
  - Platelet count decreased [Not Recovered/Not Resolved]
  - Decreased appetite [Unknown]
  - Fatigue [Unknown]
  - Anaemia [Unknown]
  - Dyspnoea [Unknown]
  - Weight decreased [Unknown]
  - Injection site pruritus [Unknown]
  - Injection site discolouration [Unknown]
  - Red blood cell count decreased [Unknown]
  - White blood cell count decreased [Unknown]
  - Gastrooesophageal reflux disease [Unknown]
  - Platelet count decreased [Unknown]
  - Flatulence [Unknown]
  - Viral load increased [Unknown]
  - Poor dental condition [Unknown]
